FAERS Safety Report 4442217-6 (Version None)
Quarter: 2004Q3

REPORT INFORMATION
  Report Type: 
  Country: None (occurrence: None)
  Receive Date: 20040903
  Receipt Date: 20040719
  Transmission Date: 20050211
  Serious: Yes (Other)
  Sender: FDA-Public Use
  Company Number: 2004UW14982

PATIENT
  Age: 61 Year
  Sex: Female

DRUGS (13)
  1. CRESTOR [Suspect]
     Dosage: 20 MG PO
     Route: 048
  2. ZETIA [Concomitant]
  3. NIASPAN [Concomitant]
  4. NO MATCH [Concomitant]
  5. AMBIEN [Concomitant]
  6. TARKA [Concomitant]
  7. FUROSEMIDE [Concomitant]
  8. K-DUR 10 [Concomitant]
  9. WELLBUTRIN [Concomitant]
  10. PAXIL [Concomitant]
  11. LANTUS [Concomitant]
  12. HUMALOG [Concomitant]
  13. NO MATCH [Concomitant]

REACTIONS (2)
  - MYOSITIS [None]
  - SINUSITIS [None]
